FAERS Safety Report 8801098 (Version 1)
Quarter: 2012Q4

REPORT INFORMATION
  Report Type: 
  Country: FR (occurrence: FR)
  Receive Date: 20120921
  Receipt Date: 20120921
  Transmission Date: 20130627
  Serious: Yes (Hospitalization)
  Sender: FDA-Public Use
  Company Number: FR-GLAXOSMITHKLINE-B0829159A

PATIENT
  Age: 80 None
  Sex: Male
  Weight: 76 kg

DRUGS (12)
  1. LAMICTAL [Suspect]
     Indication: PRODUCT USED FOR UNKNOWN INDICATION
     Dosage: 25MG Per day
     Route: 048
     Dates: start: 20120606, end: 20120714
  2. LANTUS [Suspect]
     Indication: PRODUCT USED FOR UNKNOWN INDICATION
     Dosage: 22UNIT Per day
     Route: 065
     Dates: start: 201206, end: 20120714
  3. NOVONORM [Suspect]
     Indication: PRODUCT USED FOR UNKNOWN INDICATION
     Dosage: 2MG Three times per day
     Route: 065
     Dates: start: 201206, end: 20120714
  4. ZOLOFT [Suspect]
     Indication: PRODUCT USED FOR UNKNOWN INDICATION
     Dosage: 75MG Per day
     Route: 065
     Dates: start: 201204
  5. ATHYMIL [Suspect]
     Indication: PRODUCT USED FOR UNKNOWN INDICATION
     Dosage: 10MG Per day
     Route: 048
     Dates: start: 201204
  6. LIORESAL [Suspect]
     Indication: PRODUCT USED FOR UNKNOWN INDICATION
     Dosage: 10MG Per day
     Route: 048
     Dates: start: 201204
  7. MELATONIN [Suspect]
     Indication: PRODUCT USED FOR UNKNOWN INDICATION
     Route: 065
     Dates: start: 201204
  8. OLMESARTAN [Concomitant]
     Dosage: 20MG Per day
     Route: 065
  9. AMLODIPINE [Concomitant]
     Dosage: 5MG Per day
     Route: 065
  10. BISOPROLOL [Concomitant]
     Dosage: 10MG Per day
     Route: 065
  11. ZOCOR [Concomitant]
     Dosage: 20MG Per day
     Route: 065
  12. KARDEGIC [Concomitant]
     Route: 065

REACTIONS (9)
  - Drug reaction with eosinophilia and systemic symptoms [Recovering/Resolving]
  - Odynophagia [Recovered/Resolved]
  - Oedema [Recovered/Resolved]
  - Erythema [Recovered/Resolved]
  - Skin exfoliation [Unknown]
  - Rash maculo-papular [Unknown]
  - Nail disorder [Unknown]
  - Lymphadenopathy [Unknown]
  - Eosinophilia [Recovered/Resolved]
